FAERS Safety Report 25503622 (Version 1)
Quarter: 2025Q3

REPORT INFORMATION
  Report Type: Spontaneous
  Country: EU (occurrence: EU)
  Receive Date: 20250702
  Receipt Date: 20250702
  Transmission Date: 20251021
  Serious: Yes (Hospitalization)
  Sender: NOVA LABORATORIES LIMITED
  Company Number: EU-Nova Laboratories Limited-2179771

PATIENT
  Age: 36 Year
  Sex: Male
  Weight: 95 kg

DRUGS (10)
  1. PURIXAN [Suspect]
     Active Substance: MERCAPTOPURINE
     Indication: Acute lymphocytic leukaemia
     Dates: start: 20210303
  2. METHOTREXATE [Suspect]
     Active Substance: METHOTREXATE
     Dates: start: 20210301
  3. ESOMEPRAZOLE. [Concomitant]
     Active Substance: ESOMEPRAZOLE MAGNESIUM
  4. METOCLOPRAMIDE [Concomitant]
     Active Substance: METOCLOPRAMIDE
  5. VALACYCLOVIR HYDROCHLORIDE [Concomitant]
     Active Substance: VALACYCLOVIR HYDROCHLORIDE
  6. HYDROCORTISONE [Concomitant]
     Active Substance: HYDROCORTISONE
  7. VINCRISTINE SULFATE [Suspect]
     Active Substance: VINCRISTINE SULFATE
     Dates: start: 20210301, end: 20210301
  8. CYTARABINE [Suspect]
     Active Substance: CYTARABINE
     Dates: start: 20210303, end: 20210303
  9. NELARABINE [Suspect]
     Active Substance: NELARABINE
     Dates: start: 20210125, end: 20210129
  10. METHOTREXATE [Suspect]
     Active Substance: METHOTREXATE

REACTIONS (3)
  - Headache [Recovered/Resolved]
  - Manufacturing issue [Recovered/Resolved]
  - Overdose [Recovered/Resolved]

NARRATIVE: CASE EVENT DATE: 20210303
